FAERS Safety Report 7432502-8 (Version None)
Quarter: 2011Q2

REPORT INFORMATION
  Report Type: 
  Country: None (occurrence: None)
  Receive Date: 20110422
  Receipt Date: 20110411
  Transmission Date: 20111010
  Serious: No
  Sender: FDA-Public Use
  Company Number: US-B.I. PHARMACEUTICALS,INC./RIDGEFIELD-2011-BP-10535BP

PATIENT
  Age: 73 Year
  Sex: Female

DRUGS (5)
  1. VIT D [Concomitant]
     Indication: PROPHYLAXIS
     Dosage: 1000 U
     Route: 048
     Dates: start: 20100101
  2. FIBER CAPLET [Concomitant]
     Indication: CONSTIPATION
     Route: 048
     Dates: start: 19800101
  3. PRADAXA [Suspect]
     Indication: ATRIAL FIBRILLATION
     Dosage: 300 MG
     Route: 048
     Dates: start: 20101201
  4. AMITRIPTYLINE HCL [Concomitant]
     Indication: MIGRAINE
     Dosage: 25 MG
     Route: 048
     Dates: start: 19800101
  5. OMEPRAZOLE [Concomitant]
     Indication: DYSPEPSIA
     Dosage: 20 MG
     Route: 048
     Dates: start: 20101201

REACTIONS (2)
  - COUGH [None]
  - DIARRHOEA [None]
